FAERS Safety Report 9057863 (Version 1)
Quarter: 2013Q1

REPORT INFORMATION
  Report Type: Spontaneous
  Country: US (occurrence: None)
  Receive Date: 20130204
  Receipt Date: 20130204
  Transmission Date: 20140127
  Serious: Yes (Other)
  Sender: FDA-Public Use
  Company Number: None

PATIENT
  Age: 39 Year
  Sex: Female
  Weight: 90.72 kg

DRUGS (2)
  1. CYMBALTA [Suspect]
     Indication: DEPRESSION
     Route: 048
     Dates: start: 20120605, end: 20120817
  2. CYMBALTA [Suspect]
     Route: 048
     Dates: start: 20111118, end: 20120605

REACTIONS (6)
  - Diarrhoea [None]
  - Nausea [None]
  - Suicidal ideation [None]
  - Anxiety [None]
  - Activities of daily living impaired [None]
  - Drug withdrawal syndrome [None]
